FAERS Safety Report 12641851 (Version 2)
Quarter: 2016Q3

REPORT INFORMATION
  Report Type: Spontaneous
  Country: US (occurrence: US)
  Receive Date: 20160810
  Receipt Date: 20160909
  Transmission Date: 20161109
  Serious: Yes (Death, Hospitalization)
  Sender: FDA-Public Use
  Company Number: US-JNJFOC-20160728160

PATIENT
  Age: 61 Year
  Sex: Female

DRUGS (1)
  1. XARELTO [Suspect]
     Active Substance: RIVAROXABAN
     Indication: DEEP VEIN THROMBOSIS
     Dosage: DOSE: 15MG, 20MG
     Route: 048
     Dates: start: 20140822, end: 20141105

REACTIONS (5)
  - Coagulopathy [Fatal]
  - Biliary cancer metastatic [Fatal]
  - Thrombocytopenia [Fatal]
  - Internal haemorrhage [Fatal]
  - Anaemia [Fatal]

NARRATIVE: CASE EVENT DATE: 2014
